FAERS Safety Report 4305244-5 (Version None)
Quarter: 2004Q1

REPORT INFORMATION
  Report Type: 
  Country: None (occurrence: None)
  Receive Date: 20040226
  Receipt Date: 20031113
  Transmission Date: 20041129
  Serious: No
  Sender: FDA-Public Use
  Company Number: US-BRISTOL-MYERS SQUIBB COMPANY-12435616

PATIENT
  Age: 37 Year

DRUGS (1)
  1. DEFINITY [Suspect]
     Indication: CARDIAC IMAGING PROCEDURE
     Dosage: 1.5 CC DILUTED IN 6 CC ^(DID GIVE ALL).^
     Dates: start: 20031101, end: 20031101

REACTIONS (2)
  - BACK PAIN [None]
  - FLUSHING [None]
